FAERS Safety Report 10152868 (Version 1)
Quarter: 2014Q2

REPORT INFORMATION
  Report Type: Spontaneous
  Country: US (occurrence: None)
  Receive Date: 20140502
  Receipt Date: 20140502
  Transmission Date: 20141212
  Serious: No
  Sender: FDA-Public Use
  Company Number: None

PATIENT
  Age: 67 Year
  Sex: Male
  Weight: 74.7 kg

DRUGS (3)
  1. CETUXIMAB [Suspect]
     Indication: RECTAL ADENOCARCINOMA
     Route: 042
     Dates: start: 20140430, end: 20140501
  2. CETUXIMAB [Suspect]
     Indication: METASTASES TO LIVER
     Route: 042
     Dates: start: 20140430, end: 20140501
  3. CETUXIMAB [Suspect]
     Indication: PULMONARY MASS
     Route: 042
     Dates: start: 20140430, end: 20140501

REACTIONS (4)
  - Flushing [None]
  - Dyspnoea [None]
  - Hypertension [None]
  - Infusion related reaction [None]
